FAERS Safety Report 8563834-8 (Version None)
Quarter: 2012Q3

REPORT INFORMATION
  Report Type: 
  Country: None (occurrence: None)
  Receive Date: 20120727
  Receipt Date: 20120727
  Transmission Date: 20120928
  Serious: Yes (Hospitalization)
  Sender: FDA-Public Use
  Company Number: None

PATIENT
  Age: 65 Year
  Sex: Male
  Weight: 100.7 kg

DRUGS (11)
  1. CHOLCECALCIFEROL/VIT D, [Concomitant]
  2. TESTOSTERONE [Concomitant]
  3. LOVAZA [Concomitant]
  4. SPIRONOLACTONE [Concomitant]
  5. PRADAXA [Suspect]
     Indication: ATRIAL FIBRILLATION
     Dosage: 150MG BID PO CHRONIC
     Route: 048
  6. GLIPIZIDE [Concomitant]
  7. METFORMIN/SITAGLIPTIN [Concomitant]
  8. LISINOPRIL [Concomitant]
  9. CINNAMON [Concomitant]
  10. SIMVASTATIN [Concomitant]
  11. CARVEDILOL [Concomitant]

REACTIONS (4)
  - LOWER GASTROINTESTINAL HAEMORRHAGE [None]
  - ULCER [None]
  - DIVERTICULUM [None]
  - HAEMORRHAGIC ANAEMIA [None]
